FAERS Safety Report 11939570 (Version 2)
Quarter: 2016Q2

REPORT INFORMATION
  Report Type: Spontaneous
  Country: US (occurrence: US)
  Receive Date: 20160122
  Receipt Date: 20160401
  Transmission Date: 20160815
  Serious: Yes (Hospitalization, Disabling, Other)
  Sender: FDA-Public Use
  Company Number: US-PFIZER INC-2016035332

PATIENT
  Age: 55 Year
  Sex: Male

DRUGS (8)
  1. TESTOSTERONE CIPIONATE [Suspect]
     Active Substance: TESTOSTERONE
     Indication: HORMONE REPLACEMENT THERAPY
     Dosage: UNK, (ONCE BI-WEEKLY)
     Dates: start: 20121102, end: 20121220
  2. TESTOSTERONE CIPIONATE [Suspect]
     Active Substance: TESTOSTERONE
     Indication: ASTHENIA
     Dosage: UNK, (ONCE BI-WEEKLY)
     Dates: start: 20130724, end: 20130823
  3. DEPO-TESTOSTERONE [Suspect]
     Active Substance: TESTOSTERONE CYPIONATE
     Indication: ASTHENIA
     Dosage: UNK, (ONCE BI-WEEKLY)
     Dates: start: 20120516, end: 20120812
  4. DEPO-TESTOSTERONE [Suspect]
     Active Substance: TESTOSTERONE CYPIONATE
     Dosage: UNK, (ONCE BI-WEEKLY)
     Dates: start: 20121019, end: 20121118
  5. DEPO-TESTOSTERONE [Suspect]
     Active Substance: TESTOSTERONE CYPIONATE
     Dosage: UNK, (ONCE BI-WEEKLY)
     Dates: start: 20131206, end: 20140105
  6. DEPO-TESTOSTERONE [Suspect]
     Active Substance: TESTOSTERONE CYPIONATE
     Dosage: UNK, (ONCE BI-WEEKLY)
     Dates: start: 20130904, end: 20131004
  7. DEPO-TESTOSTERONE [Suspect]
     Active Substance: TESTOSTERONE CYPIONATE
     Indication: HORMONE REPLACEMENT THERAPY
     Dosage: UNK (ONCE BI-WEEKLY)
     Dates: start: 20110921, end: 20120119
  8. DEPO-TESTOSTERONE [Suspect]
     Active Substance: TESTOSTERONE CYPIONATE
     Dosage: UNK, (ONCE BI-WEEKLY)
     Dates: start: 20140116, end: 20140215

REACTIONS (5)
  - Chest pain [Not Recovered/Not Resolved]
  - Acute myocardial infarction [Unknown]
  - Activities of daily living impaired [Not Recovered/Not Resolved]
  - Heart injury [Not Recovered/Not Resolved]
  - Asthenia [Not Recovered/Not Resolved]

NARRATIVE: CASE EVENT DATE: 20120308
